FAERS Safety Report 8047899-8 (Version None)
Quarter: 2012Q1

REPORT INFORMATION
  Report Type: 
  Country: None (occurrence: None)
  Receive Date: 20120116
  Receipt Date: 20120106
  Transmission Date: 20120608
  Serious: Yes (Hospitalization, Other)
  Sender: FDA-Public Use
  Company Number: DE-ABBOTT-11P-062-0729591-00

PATIENT
  Sex: Female
  Weight: 56 kg

DRUGS (4)
  1. AZATHIOPRINE [Concomitant]
     Dosage: 125MG
     Dates: start: 20110707
  2. HUMIRA [Suspect]
     Indication: CROHN'S DISEASE
     Route: 058
     Dates: start: 20110415, end: 20110527
  3. AZATHIOPRINE [Concomitant]
     Indication: CROHN'S DISEASE
     Dosage: 50MG
     Dates: start: 20110630, end: 20110707
  4. HUMIRA [Suspect]
     Dates: start: 20110630

REACTIONS (1)
  - COLONIC STENOSIS [None]
